FAERS Safety Report 10172201 (Version 1)
Quarter: 2014Q2

REPORT INFORMATION
  Report Type: Spontaneous
  Country: US (occurrence: US)
  Receive Date: 20140515
  Receipt Date: 20140515
  Transmission Date: 20141212
  Serious: No
  Sender: FDA-Public Use
  Company Number: US-B.I. PHARMACEUTICALS,INC./RIDGEFIELD-2014-BI-20168BP

PATIENT
  Age: 73 Year
  Sex: Female

DRUGS (2)
  1. ZANTAC 150 (RANITIDINE HYDROCHLORIDE) [Suspect]
     Indication: CHEST PAIN
     Dosage: 150 MG
     Route: 048
     Dates: start: 20140505
  2. PEPTO BISMOL [Concomitant]
     Indication: CHEST PAIN
     Dosage: FORMULATION: ORAL SUSPENSION
     Route: 048
     Dates: start: 20140505

REACTIONS (2)
  - Faeces discoloured [Unknown]
  - Off label use [Unknown]
